FAERS Safety Report 9916533 (Version 1)
Quarter: 2014Q1

REPORT INFORMATION
  Report Type: Spontaneous
  Country: DE (occurrence: None)
  Receive Date: 20140219
  Receipt Date: 20140219
  Transmission Date: 20141002
  Serious: Yes (Other)
  Sender: FDA-Public Use
  Company Number: SYM-2014-17543

PATIENT
  Age: 79 Year
  Sex: Male

DRUGS (1)
  1. IMIQUIMOD [Suspect]
     Indication: ACTINIC KERATOSIS
     Route: 061

REACTIONS (5)
  - Inappropriate schedule of drug administration [None]
  - Application site inflammation [None]
  - Skin ulcer [None]
  - Herpes zoster [None]
  - Overdose [None]
